FAERS Safety Report 9995195 (Version 1)
Quarter: 2014Q1

REPORT INFORMATION
  Report Type: Spontaneous
  Country: AU (occurrence: None)
  Receive Date: 20140307
  Receipt Date: 20140307
  Transmission Date: 20141002
  Serious: Yes (Hospitalization)
  Sender: FDA-Public Use
  Company Number: SYM-2014-18157

PATIENT
  Age: 66 Year
  Sex: Female

DRUGS (2)
  1. FLUOROURACIL (FLUOROURACIL) (FLUOROURACIL) [Suspect]
     Indication: RECTAL ADENOCARCINOMA
  2. LEUCOVORIN (FOLINIC ACID) (FOLINIC ACID) [Concomitant]

REACTIONS (18)
  - Stress cardiomyopathy [None]
  - Cardiogenic shock [None]
  - Intracardiac thrombus [None]
  - Fatigue [None]
  - Decreased appetite [None]
  - Nausea [None]
  - Vomiting [None]
  - Malaise [None]
  - Hypophagia [None]
  - Sinus tachycardia [None]
  - Orthostatic hypotension [None]
  - Hypomagnesaemia [None]
  - Electrolyte imbalance [None]
  - Dehydration [None]
  - Vertigo [None]
  - Cerebellar infarction [None]
  - Arteriosclerosis coronary artery [None]
  - Embolic stroke [None]
